FAERS Safety Report 20448956 (Version 1)
Quarter: 2022Q1

REPORT INFORMATION
  Report Type: Spontaneous
  Country: US (occurrence: US)
  Receive Date: 20220209
  Receipt Date: 20220209
  Transmission Date: 20220424
  Serious: Yes (Hospitalization, Other)
  Sender: FDA-Public Use
  Company Number: US-PFIZER INC-2021156601

PATIENT
  Age: 64 Year
  Sex: Female
  Weight: 114.31 kg

DRUGS (2)
  1. XELJANZ XR [Suspect]
     Active Substance: TOFACITINIB CITRATE
     Indication: Rheumatoid arthritis
     Dosage: 11 MG, 1X/DAY ( TABLET BY MOUTH ONCE A DAY)
     Route: 048
     Dates: end: 20211228
  2. XELJANZ XR [Suspect]
     Active Substance: TOFACITINIB CITRATE
     Dosage: 11 MG, 1X/DAY
     Route: 048
     Dates: start: 202201

REACTIONS (16)
  - Chest pain [Unknown]
  - Device breakage [Unknown]
  - COVID-19 [Unknown]
  - Cough [Unknown]
  - H1N1 influenza [Unknown]
  - Malaise [Unknown]
  - Panic reaction [Unknown]
  - Psychiatric symptom [Unknown]
  - Electrocardiogram abnormal [Unknown]
  - Pain in jaw [Unknown]
  - Pain [Unknown]
  - Gastrooesophageal reflux disease [Unknown]
  - Hypersomnia [Unknown]
  - Therapeutic product effect incomplete [Unknown]
  - Intentional product misuse [Unknown]
  - Product dose omission issue [Unknown]

NARRATIVE: CASE EVENT DATE: 20211201
